FAERS Safety Report 17639041 (Version 1)
Quarter: 2020Q2

REPORT INFORMATION
  Report Type: Spontaneous
  Country: IT (occurrence: IT)
  Receive Date: 20200407
  Receipt Date: 20200407
  Transmission Date: 20200713
  Serious: Yes (Other)
  Sender: FDA-Public Use
  Company Number: IT-JNJFOC-20200339551

PATIENT
  Age: 82 Year
  Sex: Female

DRUGS (6)
  1. TRIATEC [RAMIPRIL] [Concomitant]
     Active Substance: RAMIPRIL
     Dosage: 2.5 MG
  2. LASIX [Concomitant]
     Active Substance: FUROSEMIDE
     Dosage: UNK
  3. RIVAROXABAN [Suspect]
     Active Substance: RIVAROXABAN
     Indication: ATRIAL FIBRILLATION
     Dosage: UNK
     Route: 048
     Dates: start: 20190101, end: 20191101
  4. CARDICOR [Concomitant]
     Active Substance: BISOPROLOL
     Dosage: 1.25 MG
     Route: 048
  5. SINVACOR [Concomitant]
     Active Substance: SIMVASTATIN
     Dosage: 20 MG
     Route: 048
  6. TAPAZOLE [Suspect]
     Active Substance: METHIMAZOLE
     Indication: HYPERTHYROIDISM
     Dosage: 5 MG, BID
     Route: 048
     Dates: start: 20190101, end: 20191101

REACTIONS (4)
  - Thrombocytopenia [Recovering/Resolving]
  - Renal failure [Recovering/Resolving]
  - Anaemia [Recovering/Resolving]
  - Dyspnoea [Recovering/Resolving]

NARRATIVE: CASE EVENT DATE: 20191101
